FAERS Safety Report 16710732 (Version 1)
Quarter: 2019Q4

REPORT INFORMATION
  Report Type: Spontaneous
  Country: US (occurrence: US)
  Receive Date: 20190815
  Receipt Date: 20190815
  Transmission Date: 20200122
  Serious: Yes (Other)
  Sender: FDA-Public Use
  Company Number: None

PATIENT
  Age: 53 Year
  Sex: Female

DRUGS (1)
  1. IMATINIB 400MG [Suspect]
     Active Substance: IMATINIB

REACTIONS (1)
  - Dizziness [None]

NARRATIVE: CASE EVENT DATE: 20190731
